FAERS Safety Report 21101692 (Version 3)
Quarter: 2022Q3

REPORT INFORMATION
  Report Type: Spontaneous
  Country: JP (occurrence: None)
  Receive Date: 20220719
  Receipt Date: 20220726
  Transmission Date: 20221027
  Serious: Yes (Other)
  Sender: FDA-Public Use
  Company Number: 2022A184486

PATIENT
  Age: 30082 Day
  Sex: Female
  Weight: 42 kg

DRUGS (3)
  1. NEXIUM [Suspect]
     Active Substance: ESOMEPRAZOLE MAGNESIUM
     Indication: Gastrooesophageal reflux disease
     Route: 048
     Dates: start: 20180421, end: 20210512
  2. LAGNOS [Concomitant]
     Indication: Constipation
     Route: 048
  3. ALFACALCIDOL [Concomitant]
     Active Substance: ALFACALCIDOL
     Indication: Osteoporosis
     Route: 048

REACTIONS (2)
  - Acute kidney injury [Unknown]
  - Gastrointestinal tract mucosal discolouration [Unknown]

NARRATIVE: CASE EVENT DATE: 20210325
